FAERS Safety Report 7491572-1 (Version None)
Quarter: 2011Q2

REPORT INFORMATION
  Report Type: 
  Country: None (occurrence: None)
  Receive Date: 20110519
  Receipt Date: 20110505
  Transmission Date: 20111010
  Serious: Yes (Other)
  Sender: FDA-Public Use
  Company Number: FR-JNJFOC-20110306656

PATIENT
  Sex: Male

DRUGS (7)
  1. LYRICA [Concomitant]
     Indication: PRODUCT USED FOR UNKNOWN INDICATION
     Route: 048
  2. MYOLASTAN [Concomitant]
     Indication: PRODUCT USED FOR UNKNOWN INDICATION
     Route: 065
  3. ACTIQ [Suspect]
     Route: 048
  4. DURAGESIC-100 [Suspect]
     Indication: FACIAL NEURALGIA
     Route: 062
  5. LIDOCAINE [Concomitant]
     Indication: PRODUCT USED FOR UNKNOWN INDICATION
     Route: 003
  6. CLONAZEPAM [Concomitant]
     Indication: PRODUCT USED FOR UNKNOWN INDICATION
     Route: 048
  7. ACTIQ [Suspect]
     Indication: FACIAL NEURALGIA
     Route: 048

REACTIONS (2)
  - DRUG INEFFECTIVE [None]
  - DRUG DEPENDENCE [None]
